FAERS Safety Report 6911224-3 (Version None)
Quarter: 2010Q3

REPORT INFORMATION
  Report Type: 
  Country: None (occurrence: None)
  Receive Date: 20100719
  Receipt Date: 20090623
  Transmission Date: 20110219
  Serious: Yes (Hospitalization)
  Sender: FDA-Public Use
  Company Number: US-WYE-H09880209

PATIENT
  Age: 10 Year
  Sex: Female

DRUGS (1)
  1. ADVIL [Suspect]
     Dosage: ORAL
     Route: 048

REACTIONS (2)
  - ANAPHYLACTIC SHOCK [None]
  - DRUG HYPERSENSITIVITY [None]
